FAERS Safety Report 12575893 (Version 2)
Quarter: 2016Q3

REPORT INFORMATION
  Report Type: Spontaneous
  Country: GB (occurrence: GB)
  Receive Date: 20160720
  Receipt Date: 20160831
  Transmission Date: 20161109
  Serious: Yes (Death, Life-Threatening)
  Sender: FDA-Public Use
  Company Number: GB-FRESENIUS KABI-FK201604550

PATIENT
  Age: 71 Year
  Sex: Male
  Weight: 67 kg

DRUGS (22)
  1. ATORVASTATIN [Concomitant]
     Active Substance: ATORVASTATIN
  2. AMOXICILLIN. [Concomitant]
     Active Substance: AMOXICILLIN
  3. GENTAMICIN. [Concomitant]
     Active Substance: GENTAMICIN
  4. CALCIPOTRIOL [Concomitant]
     Active Substance: CALCIPOTRIENE
  5. FERROUS FUMARATE [Concomitant]
     Active Substance: FERROUS FUMARATE
  6. NUTRITIONAL SUPPLEMENT [Concomitant]
     Active Substance: DIETARY SUPPLEMENT
  7. PARACETAMOL [Concomitant]
     Active Substance: ACETAMINOPHEN
  8. CHLORHEXIDINE [Concomitant]
     Active Substance: CHLORHEXIDINE
  9. ROCURONIUM [Suspect]
     Active Substance: ROCURONIUM BROMIDE
     Indication: HYPOTONIA
     Route: 042
     Dates: start: 20160412, end: 20160412
  10. AMLODIPINE [Concomitant]
     Active Substance: AMLODIPINE BESYLATE
  11. ASPIRINE [Concomitant]
     Active Substance: ASPIRIN
  12. BISOPROLOL [Concomitant]
     Active Substance: BISOPROLOL
  13. ISOSORBIDE MONONITRATE. [Concomitant]
     Active Substance: ISOSORBIDE MONONITRATE
  14. OPIATE [Concomitant]
     Active Substance: UNSPECIFIED INGREDIENT
     Dates: start: 20160412, end: 20160412
  15. FENTANYL. [Concomitant]
     Active Substance: FENTANYL
  16. PROPOFOL. [Concomitant]
     Active Substance: PROPOFOL
  17. ASCORBIC ACID. [Concomitant]
     Active Substance: ASCORBIC ACID
  18. EZETIMIBE. [Concomitant]
     Active Substance: EZETIMIBE
  19. FOLIC ACID. [Concomitant]
     Active Substance: FOLIC ACID
  20. OMEPRAZOLE. [Concomitant]
     Active Substance: OMEPRAZOLE
  21. FUROSEMIDE. [Concomitant]
     Active Substance: FUROSEMIDE
  22. TAMSULOSIN [Concomitant]
     Active Substance: TAMSULOSIN

REACTIONS (2)
  - Anaphylactic reaction [Fatal]
  - Cardiac failure acute [Not Recovered/Not Resolved]

NARRATIVE: CASE EVENT DATE: 20160412
